FAERS Safety Report 4627017-6 (Version None)
Quarter: 2005Q1

REPORT INFORMATION
  Report Type: 
  Country: None (occurrence: None)
  Receive Date: 20050331
  Receipt Date: 20050318
  Transmission Date: 20050727
  Serious: Yes (Other)
  Sender: FDA-Public Use
  Company Number: 2005048632

PATIENT
  Sex: Female

DRUGS (1)
  1. PROVERA [Suspect]
     Indication: HORMONE REPLACEMENT THERAPY
     Dates: start: 19850701, end: 20010101

REACTIONS (1)
  - BREAST CANCER FEMALE [None]
